FAERS Safety Report 22066241 (Version 1)
Quarter: 2023Q1

REPORT INFORMATION
  Report Type: Spontaneous
  Country: US (occurrence: US)
  Receive Date: 20230306
  Receipt Date: 20230306
  Transmission Date: 20230418
  Serious: Yes (Other)
  Sender: FDA-Public Use
  Company Number: US-ALLERGAN-2305860US

PATIENT
  Sex: Female

DRUGS (1)
  1. REFRESH CELLUVISC [Suspect]
     Active Substance: CARBOXYMETHYLCELLULOSE SODIUM
     Indication: Dry eye

REACTIONS (5)
  - Spinal disorder [Unknown]
  - Madarosis [Unknown]
  - Chalazion [Unknown]
  - Blepharitis [Unknown]
  - Eye discharge [Unknown]

NARRATIVE: CASE EVENT DATE: 20170101
